FAERS Safety Report 25646574 (Version 1)
Quarter: 2025Q3

REPORT INFORMATION
  Report Type: Report from Study
  Country: US (occurrence: US)
  Receive Date: 20250805
  Receipt Date: 20250805
  Transmission Date: 20251020
  Serious: Yes (Other)
  Sender: ABBVIE
  Company Number: US-ABBVIE-6400073

PATIENT
  Sex: Female

DRUGS (1)
  1. HUMIRA [Suspect]
     Active Substance: ADALIMUMAB
     Indication: Uveitis
     Route: 058
     Dates: start: 20191212

REACTIONS (3)
  - Hepatic cirrhosis [Unknown]
  - Cholelithiasis [Not Recovered/Not Resolved]
  - Metabolic dysfunction-associated steatohepatitis [Unknown]
